FAERS Safety Report 4827171-7 (Version None)
Quarter: 2005Q4

REPORT INFORMATION
  Report Type: 
  Country: None (occurrence: None)
  Receive Date: 20051014
  Receipt Date: 20050802
  Transmission Date: 20060501
  Serious: No
  Sender: FDA-Public Use
  Company Number: 2005SP002192

PATIENT
  Age: 55 Year
  Sex: Female
  Weight: 68.0396 kg

DRUGS (3)
  1. LUNESTA [Suspect]
     Dosage: 1 MG;ORAL   2 MG;ORAL   3 MG;ORAL
     Route: 048
     Dates: start: 20050701, end: 20050701
  2. LUNESTA [Suspect]
     Dosage: 1 MG;ORAL   2 MG;ORAL   3 MG;ORAL
     Route: 048
     Dates: start: 20050701, end: 20050701
  3. LUNESTA [Suspect]
     Dosage: 1 MG;ORAL   2 MG;ORAL   3 MG;ORAL
     Route: 048
     Dates: start: 20050701

REACTIONS (2)
  - DRUG INEFFECTIVE [None]
  - INSOMNIA [None]
